FAERS Safety Report 6129225-4 (Version None)
Quarter: 2009Q1

REPORT INFORMATION
  Report Type: 
  Country: None (occurrence: None)
  Receive Date: 20090324
  Receipt Date: 20090213
  Transmission Date: 20090719
  Serious: No
  Sender: FDA-Public Use
  Company Number: US-BAYER-200913366NA

PATIENT
  Sex: Female

DRUGS (1)
  1. MIRENA [Suspect]
     Indication: DRUG USE FOR UNKNOWN INDICATION
     Dosage: ONTINUOUS
     Route: 015
     Dates: start: 20080520, end: 20090101

REACTIONS (3)
  - AFFECT LABILITY [None]
  - IRRITABILITY [None]
  - LIBIDO DECREASED [None]
